FAERS Safety Report 6460405-4 (Version None)
Quarter: 2009Q4

REPORT INFORMATION
  Report Type: 
  Country: None (occurrence: None)
  Receive Date: 20091130
  Receipt Date: 20091120
  Transmission Date: 20100525
  Serious: Yes (Hospitalization)
  Sender: FDA-Public Use
  Company Number: IT-ROCHE-634105

PATIENT
  Sex: Male

DRUGS (4)
  1. XELODA [Suspect]
     Indication: COLON CANCER STAGE IV
     Dosage: FREQUENCY: CYCLE
     Route: 048
     Dates: start: 20090102, end: 20090428
  2. OXALIPLATIN [Suspect]
     Indication: COLON CANCER STAGE IV
     Dosage: FREQUENCYL CYCLE
     Route: 042
     Dates: start: 20090111, end: 20090424
  3. ERBITUX [Suspect]
     Indication: COLON CANCER STAGE IV
     Dosage: FREQUENCY: CYCLE
     Route: 042
     Dates: start: 20090111, end: 20090211
  4. CAMPTOSAR [Suspect]
     Indication: COLON CANCER STAGE IV
     Dosage: FREQUENCY: CYCLE
     Route: 042
     Dates: start: 20090111, end: 20090423

REACTIONS (3)
  - CEREBROVASCULAR ACCIDENT [None]
  - HEMIPARESIS [None]
  - SEPTIC SHOCK [None]
